FAERS Safety Report 7216137-8 (Version None)
Quarter: 2011Q1

REPORT INFORMATION
  Report Type: 
  Country: None (occurrence: None)
  Receive Date: 20110107
  Receipt Date: 20101231
  Transmission Date: 20110831
  Serious: Yes (Death, Other)
  Sender: FDA-Public Use
  Company Number: US-PFIZER INC-2011000355

PATIENT
  Age: 40 Year
  Sex: Male

DRUGS (3)
  1. ALPRAZOLAM [Suspect]
  2. OXYMORPHONE [Suspect]
  3. HYDROCODONE [Suspect]

REACTIONS (3)
  - DEATH [None]
  - RESPIRATORY ARREST [None]
  - CARDIAC ARREST [None]
